FAERS Safety Report 9516274 (Version 1)
Quarter: 2013Q1

REPORT INFORMATION
  Report Type: Spontaneous
  Country: US (occurrence: None)
  Receive Date: 20130305
  Receipt Date: 20130305
  Transmission Date: 20140127
  Serious: Yes (Hospitalization)
  Sender: FDA-Public Use
  Company Number: 163-21880-12081273

PATIENT
  Age: 65 Year
  Sex: Female
  Weight: 90.72 kg

DRUGS (9)
  1. REVLIMID [Suspect]
     Indication: PLASMA CELL MYELOMA
     Dosage: 1 IN 1 D
     Route: 048
     Dates: start: 201204
  2. ATIVAN [Concomitant]
  3. MAALOX [Concomitant]
  4. PHENERGAN [Concomitant]
  5. ZOFRAN [Concomitant]
  6. CLINDAMYCIN [Concomitant]
  7. MYCELEX [Concomitant]
  8. LASIX [Concomitant]
  9. POTASSIUM [Concomitant]

REACTIONS (2)
  - Pneumonia [None]
  - Candida infection [None]
